FAERS Safety Report 7182740-7 (Version None)
Quarter: 2010Q4

REPORT INFORMATION
  Report Type: 
  Country: None (occurrence: None)
  Receive Date: 20101221
  Receipt Date: 20100601
  Transmission Date: 20110411
  Serious: No
  Sender: FDA-Public Use
  Company Number: US-AMGEN-TCS412210

PATIENT

DRUGS (18)
  1. ENBREL [Suspect]
     Indication: RHEUMATOID ARTHRITIS
     Dosage: 50 MG, QWK
     Route: 058
     Dates: start: 20100412
  2. METHOTREXATE [Concomitant]
     Dosage: 2.5 MG, 3 TIMES/WK
     Route: 058
     Dates: start: 20091203
  3. INSULIN [Concomitant]
     Dosage: UNK UNK, UNK
     Dates: start: 20091113
  4. ZOLPIDEM TARTRATE [Concomitant]
     Dosage: 5 MG, QD
     Dates: start: 20091113, end: 20100430
  5. ACETAMINOPHEN AND HYDROCODONE BITARTRATE [Concomitant]
     Dosage: 7.5 MG, UNK
     Dates: start: 20091113
  6. LEVOCETIRIZINE DIHYDROCHLORIDE [Concomitant]
     Dosage: 5 MG, QD
     Dates: start: 20091113, end: 20100315
  7. ESCITALOPRAM [Concomitant]
     Dosage: 20 MG, QD
     Dates: start: 20091113
  8. IBUPROFEN [Concomitant]
     Dosage: 200 MG, BID
     Dates: start: 20091113, end: 20100315
  9. MULTIVIT [Concomitant]
     Dosage: UNK UNK, UNK
     Dates: start: 20091113
  10. CALCIUM WITH VITAMIN D [Concomitant]
     Dosage: 600 MG, QD
     Dates: start: 20091113
  11. CYCLOBENZAPRINE HCL [Concomitant]
     Dosage: 30 MG, QD
     Dates: start: 20091113
  12. ALPRAZOLAM [Concomitant]
     Dosage: 15 MG, PRN
     Dates: start: 20091113
  13. PIMECROLIMUS [Concomitant]
     Dosage: UNK UNK, UNK
     Dates: start: 20091113
  14. PREDNISONE [Concomitant]
     Dosage: 5 MG, UNK
     Dates: end: 20091113
  15. HYDROXYCHLOROQUINE SULFATE [Concomitant]
     Dosage: 200 MG, BID
     Dates: start: 20091113
  16. FOLIC ACID [Concomitant]
     Dosage: 1 MG, UNK
     Dates: start: 20091113
  17. ROBITUSSIN-DM [Concomitant]
     Dosage: UNK UNK, Q6H
     Dates: start: 20100315, end: 20100520
  18. FLAX SEED OIL [Concomitant]
     Dosage: UNK UNK, UNK
     Dates: start: 20091113

REACTIONS (5)
  - FATIGUE [None]
  - INFLUENZA LIKE ILLNESS [None]
  - MUSCLE RIGIDITY [None]
  - MYALGIA [None]
  - RHEUMATOID ARTHRITIS [None]
